FAERS Safety Report 6972008-3 (Version None)
Quarter: 2010Q3

REPORT INFORMATION
  Report Type: 
  Country: None (occurrence: None)
  Receive Date: 20100908
  Receipt Date: 20100908
  Transmission Date: 20110219
  Serious: Yes (Death, Life-Threatening, Hospitalization)
  Sender: FDA-Public Use
  Company Number: None

PATIENT
  Sex: Male
  Weight: 54.4316 kg

DRUGS (2)
  1. AZITHROMYCIN [Suspect]
     Indication: BACTERIAL INFECTION
     Dosage: QUNITY 6 2 DAY THEN 1 DAY MOUTH
  2. ZITHROMAX [Suspect]
     Dosage: 250 Z-PAK 2 DAY THEN 1 DAY MOUTH
     Route: 048

REACTIONS (3)
  - CARDIAC DISORDER [None]
  - DIZZINESS [None]
  - DRUG HYPERSENSITIVITY [None]
